FAERS Safety Report 10568500 (Version 1)
Quarter: 2014Q4

REPORT INFORMATION
  Report Type: Spontaneous
  Country: CH (occurrence: CH)
  Receive Date: 20141106
  Receipt Date: 20141106
  Transmission Date: 20150529
  Serious: Yes (Hospitalization)
  Sender: FDA-Public Use
  Company Number: PHHY2014CH144052

PATIENT
  Age: 11 Year
  Sex: Female
  Weight: 27 kg

DRUGS (33)
  1. MORPHINE [Concomitant]
     Active Substance: MORPHINE
     Dosage: 50 MG, QD
     Route: 042
     Dates: start: 20140924, end: 20140926
  2. PROPOFOL. [Concomitant]
     Active Substance: PROPOFOL
     Dosage: 200 MG, QD
     Route: 042
     Dates: start: 20141003, end: 20141003
  3. LASIX [Concomitant]
     Active Substance: FUROSEMIDE
     Dosage: 2 MG, QD
     Route: 042
     Dates: start: 20140925, end: 20140925
  4. NEXIUM CONTROL [Concomitant]
     Active Substance: ESOMEPRAZOLE MAGNESIUM
     Dosage: 20 MG, BID
     Route: 042
  5. MOVICOL                            /01749801/ [Concomitant]
     Dosage: 1 DF, BID
     Route: 048
     Dates: start: 20140926, end: 20140926
  6. OCULOTECT//RETINOL PALMITATE [Concomitant]
     Dosage: 2 DF, BID
     Route: 047
     Dates: start: 20140924, end: 20140926
  7. VANCOMYCIN [Suspect]
     Active Substance: VANCOMYCIN
     Indication: BACTERIAL INFECTION
     Dosage: 400 MG, QD
     Route: 042
     Dates: end: 20141012
  8. DAFALGAN [Suspect]
     Active Substance: ACETAMINOPHEN
     Indication: PYREXIA
     Dosage: 400 MG, QID
     Route: 048
     Dates: start: 20141007, end: 20141013
  9. MIDAZOLAM [Concomitant]
     Active Substance: MIDAZOLAM\MIDAZOLAM HYDROCHLORIDE
     Dosage: 45 MG, QD
     Route: 042
     Dates: start: 20140924, end: 20140925
  10. SOLMUCOL [Concomitant]
     Dosage: 400 MG, BID
     Route: 042
     Dates: start: 20140925
  11. DOPAMINE [Concomitant]
     Active Substance: DOPAMINE\DOPAMINE HYDROCHLORIDE
     Dosage: 410 MG, QD
     Dates: start: 20140924, end: 20140928
  12. TAZOBAC [Suspect]
     Active Substance: PIPERACILLIN SODIUM\TAZOBACTAM SODIUM
     Indication: PSEUDOMONAS INFECTION
     Dosage: 2 G, TID
     Route: 042
     Dates: start: 20140925, end: 20141013
  13. OBRACIN [Concomitant]
     Active Substance: TOBRAMYCIN
     Indication: BACTERIAL INFECTION
     Dosage: 70 MG, TID
     Route: 042
     Dates: start: 20141010, end: 20141013
  14. MORPHINE [Concomitant]
     Active Substance: MORPHINE
     Dosage: 6 MG, UNK
     Route: 042
     Dates: start: 20140924, end: 20141014
  15. LIQUEMINE [Concomitant]
     Active Substance: HEPARIN SODIUM
     Dosage: 150 IU, QD
     Route: 042
     Dates: start: 20140924, end: 20140929
  16. PERFALGAN [Suspect]
     Active Substance: ACETAMINOPHEN
     Indication: PYREXIA
     Dosage: 400 MG, QID
     Route: 042
     Dates: start: 20140924, end: 20141006
  17. KONAKION [Concomitant]
     Active Substance: PHYTONADIONE
     Dosage: 5 MG, UNK
     Route: 042
     Dates: start: 20140930, end: 20141003
  18. TAVEGYL [Concomitant]
     Active Substance: CLEMASTINE FUMARATE
     Dosage: 0.7 MG, BID
     Route: 042
     Dates: start: 20141011
  19. RAPIDOCAINE AD US. CARDIOLOGICUM [Concomitant]
     Dosage: 10 MG, QD
     Route: 042
     Dates: start: 20141011, end: 20141011
  20. CERNEVIT [Concomitant]
     Active Substance: VITAMINS
     Dosage: 0.5 DF, QD
     Route: 042
     Dates: start: 20140929, end: 20141006
  21. MOTILIUM ^BYK GULDEN^ [Concomitant]
     Dosage: 5 MG, TID
     Route: 048
     Dates: start: 20140924, end: 20140928
  22. TEMESTA [Concomitant]
     Active Substance: LORAZEPAM
     Dosage: 0.5 MG, UNK
     Route: 048
     Dates: start: 20140926, end: 20141004
  23. BULBOID [Concomitant]
     Dosage: 1 DF, QD
     Dates: start: 20140928, end: 20140928
  24. MULTIBIONTA NUTRITION              /07517601/ [Concomitant]
     Dosage: 14 GTT, QD
     Route: 002
     Dates: start: 20141007, end: 20141010
  25. OMEPRAZOLE. [Concomitant]
     Active Substance: OMEPRAZOLE
     Dosage: 20 MG, QD
     Route: 048
     Dates: start: 20141007, end: 20141010
  26. TORA-DOL [Concomitant]
     Active Substance: KETOROLAC TROMETHAMINE
     Dosage: 10 MG, QD
     Dates: start: 20141003, end: 20141003
  27. MINALGIN [Concomitant]
     Active Substance: METAMIZOLE
     Dosage: 400 MG, QD
     Route: 042
     Dates: start: 20140928, end: 20140930
  28. ATARAX                                  /INO/ [Concomitant]
     Dosage: 25 MG, QD
     Route: 048
     Dates: start: 20141012, end: 20141012
  29. MEFENACID [Suspect]
     Active Substance: MEFENAMIC ACID
     Indication: PYREXIA
     Dosage: 500 MG, QD
     Route: 048
     Dates: start: 20141005, end: 20141013
  30. PRIMPERAN [Concomitant]
     Active Substance: METOCLOPRAMIDE HYDROCHLORIDE
     Dosage: 6 MG, TID
     Route: 042
     Dates: start: 20140929, end: 20141015
  31. ZOFRAN [Concomitant]
     Active Substance: ONDANSETRON HYDROCHLORIDE
     Dosage: 4 MG, QD
     Route: 042
     Dates: start: 20140926, end: 20141005
  32. LIQUEMINE [Concomitant]
     Active Substance: HEPARIN SODIUM
     Dosage: 500 UNK, UNK
     Route: 042
     Dates: start: 20140929
  33. NERVIFENE [Concomitant]
     Dosage: 1150 MG, UNK
     Route: 048
     Dates: start: 20140924, end: 20141008

REACTIONS (7)
  - Rash maculo-papular [Recovering/Resolving]
  - Hepatitis fulminant [Recovering/Resolving]
  - Drug reaction with eosinophilia and systemic symptoms [Recovering/Resolving]
  - Thrombocytopenia [Recovered/Resolved]
  - Leukopenia [Recovered/Resolved]
  - Red man syndrome [Recovered/Resolved]
  - Renal impairment [Recovered/Resolved]

NARRATIVE: CASE EVENT DATE: 20141010
